FAERS Safety Report 7731493-X (Version None)
Quarter: 2011Q3

REPORT INFORMATION
  Report Type: 
  Country: None (occurrence: None)
  Receive Date: 20110906
  Receipt Date: 20110606
  Transmission Date: 20111222
  Serious: No
  Sender: FDA-Public Use
  Company Number: US-AMGEN-USASP2011029278

PATIENT
  Age: 90 Year
  Sex: Female

DRUGS (13)
  1. NITROGLYCERIN [Concomitant]
     Dosage: UNK UNK, QD
  2. ASPIRIN [Concomitant]
     Dosage: UNK
     Dates: end: 20110101
  3. ATENOLOL [Concomitant]
     Dosage: 2 MG, QD
  4. COUMADIN [Concomitant]
     Dosage: UNK UNK, QD
  5. DIGOXIN [Concomitant]
     Dosage: UNK UNK, QD
  6. TAZTIA XT [Concomitant]
  7. FUROSEMIDE [Concomitant]
  8. PROLIA [Suspect]
     Indication: OSTEOPOROSIS
     Dosage: 60 MG, Q6MO
     Dates: start: 20110315
  9. PRESERVISION EYE VITAMIN AND MINERAL SUPPL. [Concomitant]
  10. VITAMIN D [Concomitant]
  11. CALCIUM CITRATE [Concomitant]
  12. SIMVASTATIN [Concomitant]
  13. POTASSIUM [Concomitant]
     Dosage: UNK, QOD

REACTIONS (4)
  - HAEMORRHAGE [None]
  - PROTHROMBIN TIME ABNORMAL [None]
  - EPISTAXIS [None]
  - MYALGIA [None]
